FAERS Safety Report 19413139 (Version 2)
Quarter: 2021Q2

REPORT INFORMATION
  Report Type: Spontaneous
  Country: JP (occurrence: JP)
  Receive Date: 20210614
  Receipt Date: 20210625
  Transmission Date: 20210717
  Serious: Yes (Other)
  Sender: FDA-Public Use
  Company Number: JP-OTSUKA-2021_019970

PATIENT
  Age: 8 Decade
  Sex: Female

DRUGS (2)
  1. SAMSCA [Suspect]
     Active Substance: TOLVAPTAN
     Indication: OEDEMA
  2. SAMSCA [Suspect]
     Active Substance: TOLVAPTAN
     Indication: NEPHROTIC SYNDROME
     Dosage: UNK
     Route: 048
     Dates: start: 202008

REACTIONS (3)
  - Nephropathy toxic [Recovered/Resolved]
  - Nephrotic syndrome [Recovering/Resolving]
  - Product use in unapproved indication [Unknown]
